FAERS Safety Report 23168256 (Version 2)
Quarter: 2024Q1

REPORT INFORMATION
  Report Type: Spontaneous
  Country: JP (occurrence: JP)
  Receive Date: 20231109
  Receipt Date: 20240301
  Transmission Date: 20240409
  Serious: Yes (Hospitalization, Other)
  Sender: FDA-Public Use
  Company Number: JP-MSD-M2023-05086

PATIENT
  Sex: Male

DRUGS (5)
  1. KEYTRUDA [Suspect]
     Active Substance: PEMBROLIZUMAB
     Indication: Renal cell carcinoma
     Dosage: 200 MILLIGRAM, Q3W
     Route: 041
     Dates: start: 202212, end: 2023
  2. KEYTRUDA [Suspect]
     Active Substance: PEMBROLIZUMAB
     Dosage: 200 MILLIGRAM, Q3W
     Route: 041
     Dates: start: 2023, end: 2023
  3. KEYTRUDA [Suspect]
     Active Substance: PEMBROLIZUMAB
     Dosage: 200 MILLIGRAM, Q3W
     Route: 041
     Dates: start: 2023
  4. AXITINIB [Concomitant]
     Active Substance: AXITINIB
     Indication: Renal cell carcinoma
     Dosage: 5 MILLIGRAM, BID
     Route: 048
     Dates: start: 202212
  5. AXITINIB [Concomitant]
     Active Substance: AXITINIB
     Dosage: UNK
     Route: 048
     Dates: start: 2023, end: 2023

REACTIONS (4)
  - Autoimmune disorder [Recovered/Resolved]
  - Alanine aminotransferase increased [Recovered/Resolved]
  - Aspartate aminotransferase increased [Recovered/Resolved]
  - Liver function test increased [Recovering/Resolving]

NARRATIVE: CASE EVENT DATE: 20230101
